FAERS Safety Report 26138710 (Version 1)
Quarter: 2025Q4

REPORT INFORMATION
  Report Type: Spontaneous
  Country: EU (occurrence: EU)
  Receive Date: 20251210
  Receipt Date: 20251210
  Transmission Date: 20260117
  Serious: Yes (Disabling)
  Sender: JOHNSON AND JOHNSON
  Company Number: EU-JNJFOC-20251203628

PATIENT
  Age: 58 Year
  Sex: Female

DRUGS (9)
  1. STELARA [Suspect]
     Active Substance: USTEKINUMAB
     Indication: Psoriatic arthropathy
  2. STELARA [Suspect]
     Active Substance: USTEKINUMAB
     Dates: start: 20251114, end: 20251124
  3. STELARA [Suspect]
     Active Substance: USTEKINUMAB
     Dates: start: 20250808, end: 20250808
  4. FLUTICASONE PROPIONATE\SALMETEROL XINAFOATE [Concomitant]
     Active Substance: FLUTICASONE PROPIONATE\SALMETEROL XINAFOATE
     Indication: Product used for unknown indication
     Dosage: 500 YG/0
     Dates: start: 20251114, end: 20251124
  5. LATANOPROST [Concomitant]
     Active Substance: LATANOPROST
     Indication: Product used for unknown indication
     Dosage: R/L 1*AT NIGHT
     Dates: start: 20251125, end: 20251126
  6. VALSARTAN [Concomitant]
     Active Substance: VALSARTAN
     Indication: Product used for unknown indication
     Dates: start: 20251002, end: 20251004
  7. valsartan zen [Concomitant]
     Indication: Product used for unknown indication
     Dates: start: 20251002, end: 20251004
  8. monoprost edp [Concomitant]
     Indication: Product used for unknown indication
     Dates: start: 20250929, end: 20251001
  9. METAMIZOLE [Concomitant]
     Active Substance: METAMIZOLE
     Indication: Product used for unknown indication

REACTIONS (1)
  - Blindness unilateral [Not Recovered/Not Resolved]
